FAERS Safety Report 15500844 (Version 2)
Quarter: 2018Q4

REPORT INFORMATION
  Report Type: Spontaneous
  Country: RO (occurrence: RO)
  Receive Date: 20181015
  Receipt Date: 20181015
  Transmission Date: 20190205
  Serious: Yes (Hospitalization, Other)
  Sender: FDA-Public Use
  Company Number: PHHY2018RO126405

PATIENT
  Age: 68 Year
  Sex: Male

DRUGS (2)
  1. IBUPROFEN. [Suspect]
     Active Substance: IBUPROFEN
     Indication: MIGRAINE
     Dosage: 2 G, QD
     Route: 048
  2. CARBAMAZEPINE. [Suspect]
     Active Substance: CARBAMAZEPINE
     Indication: MIGRAINE
     Dosage: 600 MG, QD
     Route: 065

REACTIONS (16)
  - Pallor [Unknown]
  - Pneumonia [Unknown]
  - Cough [Unknown]
  - Productive cough [Unknown]
  - Cachexia [Unknown]
  - Dysphagia [Unknown]
  - Dysphonia [Unknown]
  - Rales [Unknown]
  - Adenoma benign [Unknown]
  - Anaemia [Unknown]
  - Hypokalaemia [Unknown]
  - Tracheo-oesophageal fistula [Unknown]
  - Cholestasis [Unknown]
  - Lymphadenopathy [Unknown]
  - Haemangioma of liver [Unknown]
  - Systemic inflammatory response syndrome [Unknown]
